FAERS Safety Report 23171979 (Version 5)
Quarter: 2024Q3

REPORT INFORMATION
  Report Type: Spontaneous
  Country: FR (occurrence: FR)
  Receive Date: 20231110
  Receipt Date: 20240830
  Transmission Date: 20241016
  Serious: Yes (Other)
  Sender: MYLAN
  Company Number: None

PATIENT
  Age: 20 Year
  Sex: Female

DRUGS (17)
  1. ETOPOSIDE [Suspect]
     Active Substance: ETOPOSIDE
     Indication: Hodgkin^s disease stage IV
     Dosage: UNK
     Route: 065
     Dates: start: 20230601
  2. ETOPOSIDE [Suspect]
     Active Substance: ETOPOSIDE
     Dosage: UNK
     Route: 065
     Dates: start: 202209, end: 202211
  3. PREDNISONE [Suspect]
     Active Substance: PREDNISONE
     Indication: Hodgkin^s disease stage IV
     Dosage: 40 MG/M2,SEP,NOV 2022: 2 COURSE, DEC 2022 1 COURSE
     Route: 048
     Dates: start: 202209, end: 202212
  4. NIVOLUMAB [Suspect]
     Active Substance: NIVOLUMAB
     Indication: Hodgkin^s disease stage IV
     Dosage: UNK, Q21D
     Route: 042
     Dates: start: 20230215, end: 20230420
  5. MELPHALAN [Suspect]
     Active Substance: MELPHALAN
     Indication: Hodgkin^s disease stage IV
     Dosage: UNK
     Route: 065
     Dates: start: 20230601, end: 20230601
  6. CYTARABINE [Suspect]
     Active Substance: CYTARABINE
     Indication: Hodgkin^s disease stage IV
     Dosage: UNK
     Route: 065
     Dates: start: 20230601
  7. CARMUSTINE [Suspect]
     Active Substance: CARMUSTINE
     Indication: Hodgkin^s disease stage IV
     Dosage: 1 DOSAGE FORM, TOTAL
     Route: 042
     Dates: start: 20220602, end: 20220602
  8. CARMUSTINE [Suspect]
     Active Substance: CARMUSTINE
     Dosage: UNK
     Route: 065
     Dates: start: 20230601, end: 20230601
  9. ADCETRIS [Suspect]
     Active Substance: BRENTUXIMAB VEDOTIN
     Indication: Hodgkin^s disease stage IV
     Dosage: UNK, Q21D, 4 COARSES
     Route: 042
     Dates: start: 20230215, end: 20230420
  10. MELPHALAN [Concomitant]
     Active Substance: MELPHALAN
     Indication: Hodgkin^s disease stage IV
     Dosage: 1 DOSAGE FORM, 1 TOTAL
     Route: 042
     Dates: start: 20230530, end: 20230530
  11. CYCLOPHOSPHAMIDE [Concomitant]
     Active Substance: CYCLOPHOSPHAMIDE
     Indication: Hodgkin^s disease stage IV
     Dosage: UNK
     Route: 042
     Dates: start: 20221205, end: 20221208
  12. DOXORUBICIN [Concomitant]
     Active Substance: DOXORUBICIN
     Indication: Hodgkin^s disease stage IV
     Dosage: UNK
     Route: 042
     Dates: start: 202209, end: 202211
  13. DACARBAZINE [Concomitant]
     Active Substance: DACARBAZINE
     Indication: Hodgkin^s disease stage IV
     Dosage: UNK
     Route: 042
     Dates: start: 20221205, end: 20221208
  14. ONCOVIN [Concomitant]
     Active Substance: VINCRISTINE SULFATE
     Indication: Hodgkin^s disease stage IV
     Dosage: UNK
     Route: 042
     Dates: start: 202209, end: 202211
  15. CYTARABINE [Concomitant]
     Active Substance: CYTARABINE
     Indication: Hodgkin^s disease stage IV
     Dosage: 1 DOSAGE FORM, QD
     Route: 042
     Dates: start: 20230526, end: 20230529
  16. CARMUSTINE [Concomitant]
     Active Substance: CARMUSTINE
     Indication: Hodgkin^s disease stage IV
     Dosage: 1 DOSAGE FORM, 1 TOTAL
     Route: 042
     Dates: start: 20220602, end: 20220602
  17. ETOPOSIDE [Concomitant]
     Active Substance: ETOPOSIDE
     Indication: Hodgkin^s disease stage IV
     Dosage: UNK
     Route: 042
     Dates: start: 202209, end: 202211

REACTIONS (3)
  - Osteonecrosis [Not Recovered/Not Resolved]
  - Femur fracture [Not Recovered/Not Resolved]
  - Off label use [Unknown]

NARRATIVE: CASE EVENT DATE: 20230526
